FAERS Safety Report 16384726 (Version 1)
Quarter: 2019Q2

REPORT INFORMATION
  Report Type: Spontaneous
  Country: US (occurrence: US)
  Receive Date: 20190603
  Receipt Date: 20190603
  Transmission Date: 20190711
  Serious: No
  Sender: FDA-Public Use
  Company Number: US-AKCEA THERAPEUTICS-2019IS001499

PATIENT

DRUGS (1)
  1. TEGSEDI [Suspect]
     Active Substance: INOTERSEN SODIUM
     Indication: PRODUCT USED FOR UNKNOWN INDICATION
     Dosage: 284 MG, UNK
     Route: 058
     Dates: end: 201903

REACTIONS (3)
  - Glomerular filtration rate decreased [Unknown]
  - Drug intolerance [Unknown]
  - Fear [Unknown]
